FAERS Safety Report 4608322-6 (Version None)
Quarter: 2005Q2

REPORT INFORMATION
  Report Type: 
  Country: None (occurrence: None)
  Receive Date: 20050228
  Receipt Date: 20041216
  Transmission Date: 20051028
  Serious: Yes (Hospitalization)
  Sender: FDA-Public Use
  Company Number: FABR-10922

PATIENT
  Age: 56 Year
  Sex: Male
  Weight: 65.8 kg

DRUGS (6)
  1. FABRAZYME [Suspect]
     Indication: FABRY'S DISEASE
     Dosage: 70 MG Q2WKS  IV
     Route: 042
     Dates: start: 20040331
  2. ACIPHEX [Concomitant]
  3. ALLEGRA [Concomitant]
  4. TYLENOL (CAPLET) [Concomitant]
  5. SOLU-MEDROL [Concomitant]
  6. BENADRYL [Concomitant]

REACTIONS (1)
  - CEREBROVASCULAR ACCIDENT [None]
